FAERS Safety Report 5229611-0 (Version None)
Quarter: 2007Q1

REPORT INFORMATION
  Report Type: 
  Country: None (occurrence: None)
  Receive Date: 20070201
  Receipt Date: 20070125
  Transmission Date: 20070707
  Serious: Yes (Hospitalization)
  Sender: FDA-Public Use
  Company Number: SPVI-2007-00379

PATIENT
  Age: 7 Year
  Sex: Male
  Weight: 42 kg

DRUGS (4)
  1. DAYTRANA [Suspect]
     Indication: ATTENTION DEFICIT/HYPERACTIVITY DISORDER
     Dosage: 10 MG, TRANSDERMAL 20 MG, TRANSDERMAL
     Route: 062
     Dates: start: 20061001, end: 20061101
  2. DAYTRANA [Suspect]
     Indication: ATTENTION DEFICIT/HYPERACTIVITY DISORDER
     Dosage: 10 MG, TRANSDERMAL 20 MG, TRANSDERMAL
     Route: 062
     Dates: start: 20061101, end: 20061101
  3. CLONIDINE [Concomitant]
  4. RITALIN [Concomitant]

REACTIONS (2)
  - DYSPHAGIA [None]
  - EPILEPSY [None]
